FAERS Safety Report 15751611 (Version 1)
Quarter: 2018Q4

REPORT INFORMATION
  Report Type: Spontaneous
  Country: US (occurrence: US)
  Receive Date: 20181221
  Receipt Date: 20181221
  Transmission Date: 20190205
  Serious: No
  Sender: FDA-Public Use
  Company Number: US-UPSHER-SMITH LABORATORIES, LLC-2018USL00518

PATIENT
  Sex: Male
  Weight: 90.7 kg

DRUGS (4)
  1. KLOR-CON M [Suspect]
     Active Substance: POTASSIUM CHLORIDE
     Dosage: 40 MEQ, 1X/DAY
     Route: 048
     Dates: start: 2018
  2. TIMOPTIC [Concomitant]
     Active Substance: TIMOLOL MALEATE
  3. HYDRALAZINE [Concomitant]
     Active Substance: HYDRALAZINE HYDROCHLORIDE
  4. KLOR-CON M [Suspect]
     Active Substance: POTASSIUM CHLORIDE
     Indication: MINERAL SUPPLEMENTATION
     Dosage: 40 MEQ, 1X/DAY
     Route: 048

REACTIONS (3)
  - Product substitution issue [Not Recovered/Not Resolved]
  - Throat irritation [Not Recovered/Not Resolved]
  - Foreign body in respiratory tract [Not Recovered/Not Resolved]

NARRATIVE: CASE EVENT DATE: 2018
